FAERS Safety Report 20167050 (Version 2)
Quarter: 2021Q4

REPORT INFORMATION
  Report Type: Spontaneous
  Country: GB (occurrence: GB)
  Receive Date: 20211209
  Receipt Date: 20211216
  Transmission Date: 20220303
  Serious: Yes (Death, Other)
  Sender: FDA-Public Use
  Company Number: GB-BAYER-2021A264166

PATIENT
  Age: 44 Year
  Sex: Male

DRUGS (6)
  1. LAROTRECTINIB [Suspect]
     Active Substance: LAROTRECTINIB
     Indication: Acute myeloid leukaemia
     Dosage: UNK
     Dates: start: 20210923, end: 20211117
  2. ALLOPURINOL [Concomitant]
     Active Substance: ALLOPURINOL
  3. ACYCLOVIR [Concomitant]
     Active Substance: ACYCLOVIR
  4. FLUCONAZOLE [Concomitant]
     Active Substance: FLUCONAZOLE
  5. TENOFOVIR [Concomitant]
     Active Substance: TENOFOVIR
  6. OXYCODONE [Concomitant]
     Active Substance: OXYCODONE

REACTIONS (2)
  - Acute myeloid leukaemia [Fatal]
  - Off label use [None]
